FAERS Safety Report 7331210-1 (Version None)
Quarter: 2011Q1

REPORT INFORMATION
  Report Type: 
  Country: None (occurrence: None)
  Receive Date: 20110304
  Receipt Date: 20110228
  Transmission Date: 20110831
  Serious: Yes (Other)
  Sender: FDA-Public Use
  Company Number: DE-PFIZER INC-2011027648

PATIENT
  Age: 72 Year
  Sex: Female
  Weight: 80 kg

DRUGS (9)
  1. NEBIVOLOL HCL [Concomitant]
     Dosage: 2.5 MG, 1X/DAY
     Dates: start: 20050101
  2. ORAMORPH SR [Concomitant]
     Dosage: UNK
  3. IRON [Concomitant]
     Route: 048
  4. PANTOZOL [Concomitant]
     Dosage: 40 UNK, 1X/DAY
  5. PANTOZOL [Concomitant]
     Dosage: 20 UNK, 1X/DAY
  6. CELEBREX [Suspect]
     Indication: PROCEDURAL PAIN
     Dosage: 200 MG, 2X/DAY
     Route: 048
     Dates: start: 20101201
  7. CIPROFLOXACIN [Concomitant]
     Dosage: 500 MG, 2X/DAY
     Route: 048
     Dates: start: 20101216, end: 20101223
  8. CLEXANE [Concomitant]
     Dosage: 0.4 ML, 1X/DAY
     Route: 058
  9. OXYCODONE [Concomitant]
     Dosage: 5 UNK, 2X/DAY

REACTIONS (3)
  - LIVER FUNCTION TEST ABNORMAL [None]
  - DEAFNESS UNILATERAL [None]
  - IMPLANT SITE EFFUSION [None]
